FAERS Safety Report 4912852-7 (Version None)
Quarter: 2006Q1

REPORT INFORMATION
  Report Type: 
  Country: None (occurrence: None)
  Receive Date: 20060210
  Receipt Date: 20060201
  Transmission Date: 20060701
  Serious: Yes (Hospitalization)
  Sender: FDA-Public Use
  Company Number: B0407391A

PATIENT
  Sex: Female

DRUGS (13)
  1. AVANDIA [Suspect]
     Indication: DIABETES MELLITUS NON-INSULIN-DEPENDENT
     Dates: start: 19940101, end: 20051230
  2. SINTROM [Concomitant]
  3. AMLODIPINE [Concomitant]
  4. SPIRONOLACTONE [Concomitant]
  5. BISOPROLOL [Concomitant]
  6. FLUVASTATIN SODIUM [Concomitant]
  7. IRBESARTAN [Concomitant]
  8. COLCHICINE [Concomitant]
  9. METFORMIN HYDROCHLORIDE [Concomitant]
  10. BUMETANIDE [Concomitant]
  11. CIPROFLOXACIN [Concomitant]
  12. SINTROM [Concomitant]
  13. ..................... [Concomitant]

REACTIONS (17)
  - ATRIAL FIBRILLATION [None]
  - BODY TEMPERATURE INCREASED [None]
  - CARDIAC FAILURE [None]
  - CARDIOMEGALY [None]
  - CHRONIC OBSTRUCTIVE PULMONARY DISEASE [None]
  - CYSTITIS KLEBSIELLA [None]
  - DIFFICULTY IN WALKING [None]
  - ELECTROCARDIOGRAM LOW VOLTAGE [None]
  - ELECTROCARDIOGRAM POOR R-WAVE PROGRESSION [None]
  - GAMMA-GLUTAMYLTRANSFERASE INCREASED [None]
  - HYPOVOLAEMIA [None]
  - OBESITY [None]
  - OEDEMA PERIPHERAL [None]
  - PLEURAL EFFUSION [None]
  - URINARY TRACT INFECTION [None]
  - VENTRICULAR EXTRASYSTOLES [None]
  - VENTRICULAR FAILURE [None]
